FAERS Safety Report 8199204-4 (Version None)
Quarter: 2012Q1

REPORT INFORMATION
  Report Type: 
  Country: None (occurrence: None)
  Receive Date: 20120309
  Receipt Date: 20120228
  Transmission Date: 20120608
  Serious: Yes (Other)
  Sender: FDA-Public Use
  Company Number: US-PURDUE-USA-2012-0083023

PATIENT
  Sex: Female

DRUGS (1)
  1. OXYCONTIN [Suspect]
     Indication: PAIN
     Dosage: 80 MG, Q12H
     Route: 048
     Dates: start: 20110901, end: 20120114

REACTIONS (8)
  - PAIN IN EXTREMITY [None]
  - HYPERSOMNIA [None]
  - OEDEMA PERIPHERAL [None]
  - PULMONARY HYPERTENSION [None]
  - GAIT DISTURBANCE [None]
  - LUNG DISORDER [None]
  - LACERATION [None]
  - DRUG EFFECT INCREASED [None]
